FAERS Safety Report 10473913 (Version 2)
Quarter: 2014Q3

REPORT INFORMATION
  Report Type: Spontaneous
  Country: BR (occurrence: BR)
  Receive Date: 20140924
  Receipt Date: 20140924
  Transmission Date: 20150326
  Serious: Yes (Hospitalization)
  Sender: FDA-Public Use
  Company Number: PHHY2014BR118120

PATIENT
  Age: 84 Year
  Sex: Female
  Weight: 70 kg

DRUGS (3)
  1. DIOVAN [Suspect]
     Active Substance: VALSARTAN
     Dosage: 2 DF, A DAY
     Route: 048
     Dates: start: 20140806
  2. DIOVAN [Suspect]
     Active Substance: VALSARTAN
     Indication: HYPERTENSION
     Dosage: 1 DF, A DAY
     Route: 048
     Dates: end: 20140805
  3. DIOVAN [Suspect]
     Active Substance: VALSARTAN
     Dosage: 1 DF, A DAY

REACTIONS (7)
  - Feeling cold [Recovered/Resolved]
  - Hypertension [Recovering/Resolving]
  - Blood potassium increased [Recovered/Resolved]
  - Vomiting [Recovered/Resolved]
  - Urinary tract infection [Not Recovered/Not Resolved]
  - Pulse absent [Recovered/Resolved]
  - Hypotension [Recovered/Resolved]

NARRATIVE: CASE EVENT DATE: 20140922
